FAERS Safety Report 5828187-4 (Version None)
Quarter: 2008Q3

REPORT INFORMATION
  Report Type: 
  Country: None (occurrence: None)
  Receive Date: 20080729
  Receipt Date: 20080722
  Transmission Date: 20090109
  Serious: Yes (Disabling, Other)
  Sender: FDA-Public Use
  Company Number: 163-20785-08061073

PATIENT
  Age: 71 Year
  Sex: Male

DRUGS (21)
  1. THALOMID [Suspect]
     Indication: MULTIPLE MYELOMA
     Dosage: 200 MG, QD, ORAL
     Route: 048
     Dates: start: 20071109, end: 20080527
  2. VELCADE [Suspect]
     Indication: MULTIPLE MYELOMA
     Dates: start: 20080201, end: 20080506
  3. DECADRON [Concomitant]
  4. ALLEGRA (FEXOFENADINE HYDROHLORIDE) [Concomitant]
  5. BABY ASPIRIN(ACETYLSALICYLIC ACID) (TABLETS) [Concomitant]
  6. BIAXIN [Concomitant]
  7. COUMADIN [Concomitant]
  8. LASIX [Concomitant]
  9. LOPRESSOR (METROPROLOL TARTRATE) [Concomitant]
  10. MULTIVITAMIN [Concomitant]
  11. ZANTAC [Concomitant]
  12. PROCARDIA [Concomitant]
  13. NASONEX (MOMETASONE FUROATE) (SPRAY  (NOT INHALATION)) [Concomitant]
  14. TYLENOL (PARACETAMOL) (TABLETS) [Concomitant]
  15. ADVIL [Concomitant]
  16. ZOMETA [Concomitant]
  17. IBUPROFEN [Concomitant]
  18. POTASSIUM (POTASSIUM) [Concomitant]
  19. SUDAFED 12 HOUR [Concomitant]
  20. FEXOFENADINE HCL [Concomitant]
  21. IRON (IRON) (TABLETS) [Concomitant]

REACTIONS (11)
  - BRONCHITIS [None]
  - DISEASE PROGRESSION [None]
  - DYSPHONIA [None]
  - HAEMOGLOBIN DECREASED [None]
  - HYPOAESTHESIA [None]
  - NEUROPATHY PERIPHERAL [None]
  - OEDEMA PERIPHERAL [None]
  - PARAESTHESIA [None]
  - PNEUMONITIS [None]
  - SOMNOLENCE [None]
  - TREMOR [None]
